FAERS Safety Report 19434450 (Version 1)
Quarter: 2021Q2

REPORT INFORMATION
  Report Type: Spontaneous
  Country: US (occurrence: US)
  Receive Date: 20210617
  Receipt Date: 20210617
  Transmission Date: 20210717
  Serious: No
  Sender: FDA-Public Use
  Company Number: US-ROCHE-2647319

PATIENT
  Age: 13 Year
  Sex: Male
  Weight: 72.64 kg

DRUGS (4)
  1. ACTEMRA [Suspect]
     Active Substance: TOCILIZUMAB
     Indication: CROHN^S DISEASE
     Dosage: 162MG/0.9ML
     Route: 058
     Dates: start: 202006
  2. ACTEMRA [Suspect]
     Active Substance: TOCILIZUMAB
     Indication: CROHN^S DISEASE
     Route: 058
  3. ACTEMRA [Suspect]
     Active Substance: TOCILIZUMAB
     Indication: SAPHO SYNDROME
     Route: 058
     Dates: start: 20200501
  4. ACTEMRA [Suspect]
     Active Substance: TOCILIZUMAB
     Indication: CROHN^S DISEASE
     Route: 058

REACTIONS (4)
  - Intentional product use issue [Unknown]
  - Device issue [Unknown]
  - Off label use [Unknown]
  - Device defective [Unknown]

NARRATIVE: CASE EVENT DATE: 20200501
